FAERS Safety Report 5828676-2 (Version None)
Quarter: 2008Q3

REPORT INFORMATION
  Report Type: 
  Country: None (occurrence: None)
  Receive Date: 20080731
  Receipt Date: 20080724
  Transmission Date: 20090109
  Serious: Yes (Other)
  Sender: FDA-Public Use
  Company Number: JP-ASTRAZENECA-2008AP04082

PATIENT
  Age: 80 Year
  Sex: Male
  Weight: 64 kg

DRUGS (4)
  1. CASODEX [Suspect]
     Indication: PROSTATE CANCER
     Route: 048
     Dates: start: 20080222, end: 20080621
  2. LEUPROLIDE ACETATE [Concomitant]
     Indication: PROSTATE CANCER
     Route: 058
     Dates: start: 20080222, end: 20080522
  3. DIOVAN [Concomitant]
     Route: 048
     Dates: start: 20080501
  4. NORVASC [Concomitant]
     Route: 048
     Dates: start: 20080501

REACTIONS (1)
  - DIPLOPIA [None]
